FAERS Safety Report 19751086 (Version 1)
Quarter: 2021Q3

REPORT INFORMATION
  Report Type: Spontaneous
  Country: US (occurrence: US)
  Receive Date: 20210826
  Receipt Date: 20210826
  Transmission Date: 20211014
  Serious: Yes (Other)
  Sender: FDA-Public Use
  Company Number: US-ALLERGAN-2129109US

PATIENT
  Sex: Female

DRUGS (2)
  1. RESTASIS [Suspect]
     Active Substance: CYCLOSPORINE
     Indication: DRY EYE
     Dosage: 2 GTT, BID
     Route: 047
     Dates: start: 201411, end: 201901
  2. VITAMIN D [VITAMIN D NOS] [Concomitant]
     Active Substance: VITAMIN D NOS

REACTIONS (2)
  - Cataract [Recovered/Resolved]
  - Eye infection [Recovered/Resolved]

NARRATIVE: CASE EVENT DATE: 2018
